FAERS Safety Report 9078549 (Version 1)
Quarter: 2013Q1

REPORT INFORMATION
  Report Type: Report from Study
  Country: US (occurrence: US)
  Receive Date: 20130130
  Receipt Date: 20130130
  Transmission Date: 20140127
  Serious: No
  Sender: FDA-Public Use
  Company Number: US-ABBOTT-12P-163-0976776-00

PATIENT
  Age: 60 Year
  Sex: Male

DRUGS (4)
  1. HUMIRA [Suspect]
     Indication: CROHN^S DISEASE
     Dates: start: 200901
  2. PENTASA [Concomitant]
     Indication: CROHN^S DISEASE
  3. TRICOR [Concomitant]
     Indication: BLOOD CHOLESTEROL
  4. LOVAZA [Concomitant]
     Indication: BLOOD CHOLESTEROL

REACTIONS (3)
  - Device malfunction [Unknown]
  - Injection site vesicles [Not Recovered/Not Resolved]
  - Injection site haemorrhage [Not Recovered/Not Resolved]
